FAERS Safety Report 14267727 (Version 1)
Quarter: 2017Q4

REPORT INFORMATION
  Report Type: Spontaneous
  Country: US (occurrence: US)
  Receive Date: 20171211
  Receipt Date: 20171211
  Transmission Date: 20180321
  Serious: Yes (Disabling)
  Sender: FDA-Public Use
  Company Number: None

PATIENT
  Age: 62 Year
  Sex: Female
  Weight: 58.5 kg

DRUGS (1)
  1. CLOBETESOL [Suspect]
     Active Substance: CLOBETASOL

REACTIONS (4)
  - Rash erythematous [None]
  - Pruritus [None]
  - Skin exfoliation [None]
  - Fatigue [None]

NARRATIVE: CASE EVENT DATE: 20151204
